FAERS Safety Report 16020594 (Version 3)
Quarter: 2019Q2

REPORT INFORMATION
  Report Type: Report from Study
  Country: US (occurrence: US)
  Receive Date: 20190301
  Receipt Date: 20190510
  Transmission Date: 20190711
  Serious: Yes (Death)
  Sender: FDA-Public Use
  Company Number: US-ROCHE-2274501

PATIENT
  Age: 48 Year
  Sex: Female
  Weight: 129.39 kg

DRUGS (8)
  1. OCREVUS [Suspect]
     Active Substance: OCRELIZUMAB
     Indication: RELAPSING MULTIPLE SCLEROSIS
     Dosage: ONGOING:NO
     Route: 042
     Dates: start: 20171124
  2. CELEXA [Concomitant]
     Active Substance: CITALOPRAM HYDROBROMIDE
     Dosage: ONGOING: NO
     Route: 065
     Dates: start: 201409
  3. AMPYRA [Concomitant]
     Active Substance: DALFAMPRIDINE
     Dosage: ONGOING:NO
     Route: 065
     Dates: start: 201511
  4. BACLOFEN. [Concomitant]
     Active Substance: BACLOFEN
     Dosage: ONGOING:NO
     Route: 065
     Dates: start: 201406
  5. ZANTAC [Concomitant]
     Active Substance: RANITIDINE HYDROCHLORIDE
     Dosage: ONGOING:NO
     Route: 065
     Dates: start: 201710
  6. ANTIVERT [Concomitant]
     Active Substance: MECLIZINE HYDROCHLORIDE
     Dosage: ONGOING:NO
     Route: 065
     Dates: start: 201508
  7. NUVIGIL [Concomitant]
     Active Substance: ARMODAFINIL
     Dosage: ONGOING:NO
     Route: 065
     Dates: start: 201501
  8. ZYRTEC [Concomitant]
     Active Substance: CETIRIZINE HYDROCHLORIDE
     Dosage: ONGOING:NO
     Route: 065
     Dates: start: 201710

REACTIONS (1)
  - Post procedural pulmonary embolism [Fatal]

NARRATIVE: CASE EVENT DATE: 20190201
